FAERS Safety Report 6138020-1 (Version None)
Quarter: 2009Q1

REPORT INFORMATION
  Report Type: 
  Country: None (occurrence: None)
  Receive Date: 20090331
  Receipt Date: 20090130
  Transmission Date: 20090719
  Serious: Yes (Death)
  Sender: FDA-Public Use
  Company Number: US-TYCO HEALTHCARE/MALLINCKRODT-T200900448

PATIENT
  Age: 60 Year
  Sex: Male

DRUGS (5)
  1. TRAMADOL HCL [Suspect]
     Route: 048
  2. PROPOXYPHENE HCL CAP [Suspect]
     Route: 048
  3. BUPROPION HCL [Suspect]
     Route: 048
  4. ETHANOL [Suspect]
     Route: 048
  5. DIPHENHYDRAMINE [Suspect]
     Route: 048

REACTIONS (2)
  - CARDIO-RESPIRATORY ARREST [None]
  - COMPLETED SUICIDE [None]
